FAERS Safety Report 9548341 (Version 1)
Quarter: 2013Q2

REPORT INFORMATION
  Report Type: Spontaneous
  Country: US (occurrence: None)
  Receive Date: 20130626
  Receipt Date: 20130626
  Transmission Date: 20140414
  Serious: Yes (Hospitalization)
  Sender: FDA-Public Use
  Company Number: 299499

PATIENT
  Age: 47 Year
  Sex: Female
  Weight: 121.8 kg

DRUGS (19)
  1. BUPIVACAINE HCL [Suspect]
     Indication: PAIN
     Dates: start: 20090603
  2. ISOVUE [Suspect]
     Indication: PAIN
     Dosage: 2 ML, EPIDURAL
     Dates: start: 20090603, end: 20090603
  3. LIDOCAINE [Concomitant]
  4. KENALOG-40 [Suspect]
     Indication: PAIN
     Dosage: 2 ML, EPIDURAL
     Dates: start: 20090603, end: 20090603
  5. ASPIRIN [Concomitant]
  6. ACTOS [Concomitant]
  7. LITHIUM [Concomitant]
  8. METOPROL [Concomitant]
  9. LYRICA [Concomitant]
  10. NAMENDA [Concomitant]
  11. LEXAPRO [Suspect]
  12. SINGULAIR [Concomitant]
  13. MAG-OX [Concomitant]
  14. KCL [Concomitant]
  15. ATIVAN [Concomitant]
  16. LISINOPRIL [Concomitant]
  17. SIMVASTATIN [Concomitant]
  18. LASIX [Concomitant]
  19. ISOSORBIDE [Concomitant]

REACTIONS (2)
  - Hypoaesthesia [None]
  - Feeling abnormal [None]
